FAERS Safety Report 6529005-1 (Version None)
Quarter: 2009Q4

REPORT INFORMATION
  Report Type: 
  Country: None (occurrence: None)
  Receive Date: 20091230
  Receipt Date: 20091221
  Transmission Date: 20100525
  Serious: Yes (Hospitalization, Other)
  Sender: FDA-Public Use
  Company Number: 1871FLUDARA09

PATIENT
  Age: 40 Year
  Sex: Female

DRUGS (20)
  1. FLUDARABINE PHOSPHATE [Suspect]
     Indication: PANCREATIC CARCINOMA METASTATIC
     Dosage: 48 MG, DAILY, IV
     Route: 042
     Dates: start: 20090918, end: 20090922
  2. CYCLOPHOSPHAMIDE [Suspect]
     Indication: PANCREATIC CARCINOMA METASTATIC
     Dosage: 4500 MG, UNK, IV
     Route: 042
     Dates: start: 20090916
  3. CYCLOPHOSPHAMIDE [Suspect]
     Indication: PANCREATIC CARCINOMA METASTATIC
     Dosage: 4500 MG, UNK, IV
     Route: 042
     Dates: start: 20090917
  4. PROLEUKIN [Suspect]
     Indication: PANCREATIC CARCINOMA METASTATIC
     Dosage: UNK, UNK, IV
     Route: 042
     Dates: start: 20090923, end: 20090926
  5. MEROPENEM [Suspect]
     Indication: ANTIBIOTIC PROPHYLAXIS
     Dosage: 1 G, TID, IV
     Route: 042
     Dates: start: 20090918, end: 20090922
  6. MEROPENEM [Suspect]
     Indication: INFECTION
     Dosage: 1 G, TID, IV
     Route: 042
     Dates: start: 20090918, end: 20090922
  7. MEROPENEM [Suspect]
     Indication: NEUTROPENIC SEPSIS
     Dosage: 1 G, TID, IV
     Route: 042
     Dates: start: 20090918, end: 20090922
  8. MEROPENEM [Suspect]
     Indication: ANTIBIOTIC PROPHYLAXIS
     Dosage: 1 G, TID, IV
     Route: 042
     Dates: start: 20090923, end: 20090928
  9. MEROPENEM [Suspect]
     Indication: INFECTION
     Dosage: 1 G, TID, IV
     Route: 042
     Dates: start: 20090923, end: 20090928
  10. MEROPENEM [Suspect]
     Indication: NEUTROPENIC SEPSIS
     Dosage: 1 G, TID, IV
     Route: 042
     Dates: start: 20090923, end: 20090928
  11. MEROPENEM [Suspect]
     Indication: ANTIBIOTIC PROPHYLAXIS
     Dosage: 1 G, TID, IV
     Route: 042
     Dates: start: 20091004, end: 20091012
  12. MEROPENEM [Suspect]
     Indication: INFECTION
     Dosage: 1 G, TID, IV
     Route: 042
     Dates: start: 20091004, end: 20091012
  13. MEROPENEM [Suspect]
     Indication: NEUTROPENIC SEPSIS
     Dosage: 1 G, TID, IV
     Route: 042
     Dates: start: 20091004, end: 20091012
  14. MFEZ T CELLS [Suspect]
     Indication: PANCREATIC CARCINOMA METASTATIC
     Dosage: UNK, UNK, IV
     Route: 042
     Dates: start: 20090923, end: 20090923
  15. TEICOPLNIN [Suspect]
     Indication: ANTIBIOTIC PROPHYLAXIS
     Dosage: 200 MG, DAILY, IV
     Route: 011
     Dates: start: 20090918, end: 20090919
  16. TEICOPLNIN [Suspect]
     Indication: INFECTION
     Dosage: 200 MG, DAILY, IV
     Route: 011
     Dates: start: 20090918, end: 20090919
  17. TEICOPLNIN [Suspect]
     Indication: NEUTROPENIC SEPSIS
     Dosage: 200 MG, DAILY, IV
     Route: 011
     Dates: start: 20090918, end: 20090919
  18. TEICOPLNIN [Suspect]
     Indication: ANTIBIOTIC PROPHYLAXIS
     Dosage: 200 MG, DAILY, IV
     Route: 011
     Dates: start: 20090923, end: 20090928
  19. TEICOPLNIN [Suspect]
     Indication: INFECTION
     Dosage: 200 MG, DAILY, IV
     Route: 011
     Dates: start: 20090923, end: 20090928
  20. TEICOPLNIN [Suspect]
     Indication: NEUTROPENIC SEPSIS
     Dosage: 200 MG, DAILY, IV
     Route: 011
     Dates: start: 20090923, end: 20090928

REACTIONS (4)
  - BLOOD BILIRUBIN INCREASED [None]
  - CLOSTRIDIUM DIFFICILE COLITIS [None]
  - NEUTROPENIC SEPSIS [None]
  - PLATELET COUNT DECREASED [None]
